FAERS Safety Report 6195876-4 (Version None)
Quarter: 2009Q2

REPORT INFORMATION
  Report Type: 
  Country: None (occurrence: None)
  Receive Date: 20090515
  Receipt Date: 20090504
  Transmission Date: 20091009
  Serious: Yes (Other)
  Sender: FDA-Public Use
  Company Number: SRX_00019_2009

PATIENT
  Sex: Male

DRUGS (2)
  1. TESTOSTERONE CYPIONATE [Suspect]
     Indication: DRUG USE FOR UNKNOWN INDICATION
     Dosage: (300 MG 1X/2 WEEKS INTRAMUSCULAR)
     Route: 030
     Dates: start: 20041209
  2. IBUPROFEN [Concomitant]

REACTIONS (4)
  - DRUG DOSE OMISSION [None]
  - MYOCARDIAL INFARCTION [None]
  - PRODUCT DEPOSIT [None]
  - PRODUCT QUALITY ISSUE [None]
